FAERS Safety Report 7267430-4 (Version None)
Quarter: 2011Q1

REPORT INFORMATION
  Report Type: 
  Country: None (occurrence: None)
  Receive Date: 20110121
  Receipt Date: 20110112
  Transmission Date: 20110831
  Serious: Yes (Hospitalization)
  Sender: FDA-Public Use
  Company Number: 8027728

PATIENT
  Sex: Female
  Weight: 61.8 kg

DRUGS (9)
  1. CERTOLIZUMAB PEGOL [Suspect]
     Indication: RHEUMATOID ARTHRITIS
     Dosage: 400 MG 1X/2 WEEKS, - NR OF DOSES : 47 SUBCUTANEOUS
     Route: 058
     Dates: start: 20040211, end: 20071017
  2. PRILOSEC [Concomitant]
  3. CLARITIN-D [Concomitant]
  4. CITRACAL + D [Concomitant]
  5. TYLENOL-500 [Concomitant]
  6. FOSAMAX [Concomitant]
  7. POTASSIUM [Concomitant]
  8. JOINT FORMULA [Concomitant]
  9. OCUVITE /01053801/ [Concomitant]

REACTIONS (22)
  - HYPOTENSION [None]
  - HYPONATRAEMIA [None]
  - HYPOVOLAEMIA [None]
  - HYPERTENSION [None]
  - PLATELET COUNT DECREASED [None]
  - LYMPHOCYTOSIS [None]
  - CEREBRAL ATROPHY [None]
  - HEADACHE [None]
  - BLOOD GLUCOSE INCREASED [None]
  - HEPATIC STEATOSIS [None]
  - PNEUMONIA [None]
  - MALAISE [None]
  - HISTOPLASMOSIS DISSEMINATED [None]
  - DECREASED APPETITE [None]
  - DEHYDRATION [None]
  - SPLENOMEGALY [None]
  - NUCLEAR MAGNETIC RESONANCE IMAGING BRAIN ABNORMAL [None]
  - ACUTE PRERENAL FAILURE [None]
  - ASTHENIA [None]
  - FATIGUE [None]
  - HIP ARTHROPLASTY [None]
  - ABDOMINAL PAIN [None]
